FAERS Safety Report 9462903 (Version 2)
Quarter: 2013Q3

REPORT INFORMATION
  Report Type: Spontaneous
  Country: US (occurrence: None)
  Receive Date: 20130814
  Receipt Date: 20130827
  Transmission Date: 20140515
  Serious: Yes (Hospitalization, Other)
  Sender: FDA-Public Use
  Company Number: 2013S1001616

PATIENT
  Age: 76 Year
  Sex: Female

DRUGS (6)
  1. LIVALO [Suspect]
     Indication: ACUTE MYOCARDIAL INFARCTION
     Route: 048
     Dates: start: 20120225
  2. ASPIRIN [Concomitant]
  3. CLOPIDOGREL [Concomitant]
  4. CARVEDILOL [Concomitant]
  5. METFORMIN [Concomitant]
  6. GLIMEPIRIDE [Concomitant]

REACTIONS (1)
  - Nephrolithiasis [None]
